FAERS Safety Report 5287974-4 (Version None)
Quarter: 2007Q1

REPORT INFORMATION
  Report Type: 
  Country: None (occurrence: None)
  Receive Date: 20070118
  Receipt Date: 20060922
  Transmission Date: 20070707
  Serious: Yes (Other)
  Sender: FDA-Public Use
  Company Number: HQWYE276328SEP06

PATIENT
  Sex: Female

DRUGS (2)
  1. ADVIL PM [Suspect]
     Indication: BACK PAIN
  2. ADVIL PM [Suspect]
     Indication: INSOMNIA

REACTIONS (1)
  - DEPRESSION [None]
